FAERS Safety Report 9281493 (Version 1)
Quarter: 2013Q2

REPORT INFORMATION
  Report Type: Spontaneous
  Country: DE (occurrence: DE)
  Receive Date: 20130509
  Receipt Date: 20130509
  Transmission Date: 20140414
  Serious: Yes (Other)
  Sender: FDA-Public Use
  Company Number: DE-TEVA-401891GER

PATIENT
  Age: 30 Year
  Sex: Female
  Weight: 74 kg

DRUGS (2)
  1. PREDNISOLONE [Suspect]
     Indication: COLITIS ULCERATIVE
     Dosage: 75 MG/D; FROM GW 7+2 UNTIL 10+2 DRUG WAS GIVEN I.V.; LATER DOSES WERE 100 MG/D AND 40 MG/D
     Route: 048
     Dates: start: 20120921, end: 20130105
  2. PREDNISOLONE [Suspect]
     Indication: COLITIS ULCERATIVE
     Dosage: 100 MG/D;  OTHER TIME OF PREGNANCY: ORAL APPLICATION
     Route: 042
     Dates: start: 20120929, end: 20121019

REACTIONS (2)
  - Abortion late [Recovered/Resolved]
  - Abortion induced [Recovered/Resolved]
